FAERS Safety Report 26112473 (Version 1)
Quarter: 2025Q4

REPORT INFORMATION
  Report Type: Spontaneous
  Country: EU (occurrence: EU)
  Receive Date: 20251202
  Receipt Date: 20251202
  Transmission Date: 20260118
  Serious: Yes (Hospitalization)
  Sender: MYLAN
  Company Number: None

PATIENT
  Age: 54 Year
  Sex: Male
  Weight: 83 kg

DRUGS (8)
  1. SERTRALINE [Suspect]
     Active Substance: SERTRALINE HYDROCHLORIDE
     Indication: Mixed anxiety and depressive disorder
     Dosage: BETWEEN 50 AND 100 MG DAILY
     Dates: start: 20250513, end: 20250716
  2. SERTRALINE [Suspect]
     Active Substance: SERTRALINE HYDROCHLORIDE
     Dosage: BETWEEN 50 AND 100 MG DAILY
     Route: 048
     Dates: start: 20250513, end: 20250716
  3. SERTRALINE [Suspect]
     Active Substance: SERTRALINE HYDROCHLORIDE
     Dosage: BETWEEN 50 AND 100 MG DAILY
     Route: 048
     Dates: start: 20250513, end: 20250716
  4. SERTRALINE [Suspect]
     Active Substance: SERTRALINE HYDROCHLORIDE
     Dosage: BETWEEN 50 AND 100 MG DAILY
     Dates: start: 20250513, end: 20250716
  5. LORAZEPAM [Concomitant]
     Active Substance: LORAZEPAM
     Indication: Mixed anxiety and depressive disorder
     Dosage: BETWEEN 0.25 AND 1.5 MG DAILY
     Dates: start: 20250513, end: 20250722
  6. LORAZEPAM [Concomitant]
     Active Substance: LORAZEPAM
     Dosage: BETWEEN 0.25 AND 1.5 MG DAILY
     Route: 065
     Dates: start: 20250513, end: 20250722
  7. LORAZEPAM [Concomitant]
     Active Substance: LORAZEPAM
     Dosage: BETWEEN 0.25 AND 1.5 MG DAILY
     Route: 065
     Dates: start: 20250513, end: 20250722
  8. LORAZEPAM [Concomitant]
     Active Substance: LORAZEPAM
     Dosage: BETWEEN 0.25 AND 1.5 MG DAILY
     Dates: start: 20250513, end: 20250722

REACTIONS (4)
  - Jaundice [Recovered/Resolved]
  - Pruritus [Recovered/Resolved]
  - Asthenia [Recovered/Resolved]
  - Drug-induced liver injury [Recovered/Resolved]

NARRATIVE: CASE EVENT DATE: 20250616
